FAERS Safety Report 8851821 (Version 2)
Quarter: 2012Q4

REPORT INFORMATION
  Report Type: 
  Country: US (occurrence: US)
  Receive Date: 20121022
  Receipt Date: 20121130
  Transmission Date: 20130627
  Serious: No
  Sender: FDA-Public Use
  Company Number: US-PFIZER INC-2012259002

PATIENT
  Age: 71 Year
  Sex: Female
  Weight: 80.27 kg

DRUGS (8)
  1. SUTENT [Suspect]
     Indication: METASTATIC RENAL CELL CARCINOMA
     Dosage: 37.5 mg, cyclic, 4 weeks on and 2 weeks off
     Route: 048
     Dates: start: 20120919
  2. SUTENT [Suspect]
     Indication: MALIGNANT NEOPLASM OF BRONCHUS AND LUNG IN SITU
     Dosage: 25 mg, cyclic, 4 weeks on and 2 weeks off
     Dates: start: 20121002
  3. CLARITIN [Concomitant]
     Dosage: as needed
  4. TUMS [Concomitant]
     Dosage: as needed
  5. LOSARTAN POTASSIUM W/HYDROCHLOROTHIAZIDE [Concomitant]
     Dosage: 100/25
  6. SIMVASTATIN [Concomitant]
     Dosage: UNK
  7. GLIPIZIDE XL [Concomitant]
     Dosage: 2.5 mg, UNK
  8. METFORMIN [Concomitant]
     Dosage: 500 mg, 2x/day

REACTIONS (9)
  - Nausea [Recovered/Resolved]
  - Diarrhoea [Recovered/Resolved]
  - Pain in extremity [Unknown]
  - Weight increased [Unknown]
  - Productive cough [Unknown]
  - Dry mouth [Unknown]
  - Increased appetite [Unknown]
  - Oral pain [Unknown]
  - Fatigue [Unknown]
